FAERS Safety Report 10237100 (Version 1)
Quarter: 2014Q2

REPORT INFORMATION
  Report Type: Spontaneous
  Country: GB (occurrence: GB)
  Receive Date: 20140613
  Receipt Date: 20140613
  Transmission Date: 20141212
  Serious: Yes (Life-Threatening, Disabling)
  Sender: FDA-Public Use
  Company Number: GB-ASTRAZENECA-2014SE40816

PATIENT
  Age: 66 Year
  Sex: Female
  Weight: 66 kg

DRUGS (2)
  1. CRESTOR [Suspect]
     Indication: HYPERCHOLESTEROLAEMIA
     Route: 048
     Dates: start: 201402, end: 20140523
  2. LISINOPRIL [Concomitant]
     Indication: HYPERTENSION
     Route: 048
     Dates: start: 2008

REACTIONS (5)
  - Paraesthesia oral [Recovering/Resolving]
  - Swelling face [Recovering/Resolving]
  - Rash pruritic [Recovering/Resolving]
  - Lip swelling [Recovering/Resolving]
  - Oedema mouth [Unknown]
